FAERS Safety Report 5353166-3 (Version None)
Quarter: 2007Q2

REPORT INFORMATION
  Report Type: 
  Country: None (occurrence: None)
  Receive Date: 20070607
  Receipt Date: 20070523
  Transmission Date: 20071010
  Serious: Yes (Other)
  Sender: FDA-Public Use
  Company Number: BR-1163154

PATIENT
  Age: 50 Year

DRUGS (2)
  1. BSS [Suspect]
     Dosage: SOLUTION; INTRAOCULAR, IRRIGATION
     Route: 031
     Dates: start: 20070425, end: 20070425
  2. CARBACHOL [Suspect]
     Dosage: SOLUTION FOR INJECTION; INTRAOCULAR
     Route: 031
     Dates: start: 20070425, end: 20070425

REACTIONS (5)
  - CATARACT OPERATION COMPLICATION [None]
  - ENDOPHTHALMITIS [None]
  - EYE PRURITUS [None]
  - OCULAR HYPERAEMIA [None]
  - VISUAL ACUITY REDUCED [None]
